FAERS Safety Report 7776792-0 (Version None)
Quarter: 2011Q3

REPORT INFORMATION
  Report Type: 
  Country: None (occurrence: None)
  Receive Date: 20110923
  Receipt Date: 20110923
  Transmission Date: 20111222
  Serious: Yes (Hospitalization)
  Sender: FDA-Public Use
  Company Number: None

PATIENT
  Sex: Female
  Weight: 53 kg

DRUGS (4)
  1. BEVACIXUMAB (RHUMAB VEGF) [Suspect]
     Dosage: 795 MG
  2. LEUCOVORIN CALCIUM [Suspect]
     Dosage: 1692 MG
  3. ELOXATIN [Suspect]
     Dosage: 357 MG
  4. FLUOROURACIL [Suspect]
     Dosage: 11844 MG

REACTIONS (1)
  - MUCOSAL INFLAMMATION [None]
